FAERS Safety Report 9116481 (Version 1)
Quarter: 2013Q1

REPORT INFORMATION
  Report Type: Spontaneous
  Country: FR (occurrence: FR)
  Receive Date: 20130225
  Receipt Date: 20130225
  Transmission Date: 20140127
  Serious: Yes (Hospitalization)
  Sender: FDA-Public Use
  Company Number: FR-US-EMD SERONO, INC.-7194494

PATIENT
  Age: 27 Year
  Sex: Female

DRUGS (3)
  1. OVITRELLE [Suspect]
     Indication: PRODUCT USED FOR UNKNOWN INDICATION
     Route: 058
     Dates: start: 20110912, end: 20110912
  2. PUREGON [Suspect]
     Indication: OVULATION INDUCTION
     Route: 058
     Dates: start: 20110906, end: 20110911
  3. ORGALUTRAN [Suspect]
     Indication: OVULATION INDUCTION
     Route: 058
     Dates: start: 20110908, end: 20110911

REACTIONS (3)
  - Effusion [Recovered/Resolved]
  - Abdominal pain [Recovered/Resolved]
  - Ovarian hyperstimulation syndrome [Recovered/Resolved]
